FAERS Safety Report 6842893-4 (Version None)
Quarter: 2010Q3

REPORT INFORMATION
  Report Type: 
  Country: None (occurrence: None)
  Receive Date: 20100714
  Receipt Date: 20070814
  Transmission Date: 20110219
  Serious: No
  Sender: FDA-Public Use
  Company Number: US-PFIZER INC-2007067619

PATIENT
  Age: 82 Year
  Sex: Female
  Weight: 72.6 kg

DRUGS (4)
  1. CHANTIX [Suspect]
     Indication: SMOKING CESSATION THERAPY
     Dosage: EVERY DAY
     Dates: start: 20070101
  2. ANTIBIOTICS [Suspect]
     Indication: LUNG DISORDER
     Dates: start: 20070101
  3. PREDNISONE TAB [Concomitant]
  4. ALL OTHER THERAPEUTIC PRODUCTS [Concomitant]

REACTIONS (3)
  - DYSGEUSIA [None]
  - PAROSMIA [None]
  - VISION BLURRED [None]
